FAERS Safety Report 24993433 (Version 1)
Quarter: 2025Q1

REPORT INFORMATION
  Report Type: Spontaneous
  Country: US (occurrence: US)
  Receive Date: 20250221
  Receipt Date: 20250221
  Transmission Date: 20250409
  Serious: No
  Sender: SANDOZ
  Company Number: US-SANDOZ-SDZ2025US009327

PATIENT
  Age: 59 Year
  Sex: Male

DRUGS (1)
  1. ADALIMUMAB [Suspect]
     Active Substance: ADALIMUMAB
     Indication: Product used for unknown indication
     Dosage: 40MG/0.4MLQ2W (PREFILLED PEN)
     Route: 058
     Dates: start: 202407

REACTIONS (3)
  - Accidental exposure to product [Unknown]
  - Device mechanical issue [Unknown]
  - Device malfunction [Unknown]
